FAERS Safety Report 8898928 (Version 1)
Quarter: 2012Q4

REPORT INFORMATION
  Report Type: 
  Country: US (occurrence: US)
  Receive Date: 20121109
  Receipt Date: 20121109
  Transmission Date: 20130627
  Serious: Yes (Other)
  Sender: FDA-Public Use
  Company Number: US-BAYER-2012-116600

PATIENT
  Age: 35 Year
  Sex: Female
  Weight: 85.71 kg

DRUGS (3)
  1. YASMIN [Suspect]
     Indication: CONTRACEPTION
  2. MOTRIN [Concomitant]
     Indication: CHEST PAIN
  3. Z-PAK [Concomitant]
     Indication: CHEST PAIN

REACTIONS (1)
  - Pulmonary embolism [None]
